FAERS Safety Report 7716557-9 (Version None)
Quarter: 2011Q3

REPORT INFORMATION
  Report Type: 
  Country: None (occurrence: None)
  Receive Date: 20110829
  Receipt Date: 20110822
  Transmission Date: 20111222
  Serious: Yes (Other)
  Sender: FDA-Public Use
  Company Number: BR-SANOFI-AVENTIS-2010SA064923

PATIENT
  Age: 72 Year
  Sex: Male
  Weight: 49 kg

DRUGS (5)
  1. OPTIPEN [Suspect]
  2. LANTUS [Suspect]
     Route: 058
  3. REGULAR INSULIN [Concomitant]
     Indication: TYPE 1 DIABETES MELLITUS
  4. AUTOPEN 24 [Suspect]
  5. LANTUS [Suspect]
     Indication: TYPE 1 DIABETES MELLITUS
     Route: 058

REACTIONS (4)
  - RETINOPATHY [None]
  - HYPERGLYCAEMIA [None]
  - SYNCOPE [None]
  - BLOOD GLUCOSE DECREASED [None]
